FAERS Safety Report 4291051-9 (Version None)
Quarter: 2004Q1

REPORT INFORMATION
  Report Type: 
  Country: None (occurrence: None)
  Receive Date: 20040211
  Receipt Date: 20031103
  Transmission Date: 20041129
  Serious: No
  Sender: FDA-Public Use
  Company Number: US-GLAXOSMITHKLINE-A0432596A

PATIENT
  Age: 47 Year
  Sex: Female

DRUGS (2)
  1. PAXIL [Suspect]
     Indication: POST-TRAUMATIC STRESS DISORDER
     Dosage: 5MG PER DAY
     Route: 048
     Dates: start: 20031031, end: 20031101
  2. CLONAZEPAM [Concomitant]

REACTIONS (2)
  - DYSPHAGIA [None]
  - EAR PAIN [None]
